FAERS Safety Report 16958197 (Version 1)
Quarter: 2020Q3

REPORT INFORMATION
  Report Type: Report from Study
  Country: DE (occurrence: DE)
  Receive Date: 20191024
  Receipt Date: 20191024
  Transmission Date: 20201104
  Serious: Yes (Hospitalization)
  Sender: FDA-Public Use
  Company Number: PHHO2019DE009192

PATIENT
  Age: 65 Year
  Sex: Female
  Weight: 73 kg

DRUGS (24)
  1. ASPIRIN. [Concomitant]
     Active Substance: ASPIRIN
     Indication: HYPERTENSION
  2. VOLTAREN [Concomitant]
     Active Substance: DICLOFENAC SODIUM
     Indication: UVEITIS
     Dosage: UNK
     Route: 065
     Dates: start: 20190910, end: 20190927
  3. JANUVIA [Concomitant]
     Active Substance: SITAGLIPTIN PHOSPHATE
     Indication: TYPE 2 DIABETES MELLITUS
     Dosage: UNK
     Route: 065
     Dates: start: 20141101
  4. PANTOPRAZOL [Concomitant]
     Active Substance: PANTOPRAZOLE SODIUM
     Indication: PROPHYLAXIS
     Dosage: UNK
     Route: 065
     Dates: start: 20190730
  5. DORSOCOMB [Concomitant]
     Indication: INTRAOCULAR PRESSURE INCREASED
     Dosage: UNK
     Route: 065
     Dates: start: 20190903
  6. BROLUCIZUMAB. [Suspect]
     Active Substance: BROLUCIZUMAB
     Indication: VISUAL IMPAIRMENT
     Dosage: 6 MG/0.05 ML
     Route: 031
     Dates: start: 20190212
  7. DEXASINE [Concomitant]
     Active Substance: DEXAMETHASONE SODIUM PHOSPHATE
     Indication: PAPILLITIS
  8. RAMIPRIL COMP [Concomitant]
     Active Substance: HYDROCHLOROTHIAZIDE\RAMIPRIL
     Indication: HYPERTENSION
     Dosage: UNK
     Route: 065
     Dates: start: 20140101
  9. ACEMIT [Concomitant]
     Indication: INTRAOCULAR PRESSURE INCREASED
     Dosage: 250 MG
     Route: 065
     Dates: start: 20190903, end: 20190903
  10. ABASAGLAR [Concomitant]
     Active Substance: INSULIN GLARGINE
     Indication: TYPE 2 DIABETES MELLITUS
     Dosage: UNK
     Route: 065
     Dates: start: 20141101
  11. DEXASINE [Concomitant]
     Active Substance: DEXAMETHASONE SODIUM PHOSPHATE
     Indication: EYE INFLAMMATION
     Dosage: UNK
     Route: 065
     Dates: start: 20190820, end: 20190825
  12. PREDNISOLON [Concomitant]
     Active Substance: PREDNISOLONE
     Dosage: UNK
     Route: 065
     Dates: start: 20190824, end: 20190826
  13. RAMILICH [Concomitant]
     Active Substance: RAMIPRIL
     Indication: HYPERTENSION
     Dosage: UNK
     Route: 065
     Dates: start: 20140101
  14. HALDOL DECANOATE [Concomitant]
     Active Substance: HALOPERIDOL DECANOATE
     Indication: SCHIZOPHRENIA
     Dosage: UNK
     Route: 065
     Dates: start: 19980101
  15. ASPIRIN. [Concomitant]
     Active Substance: ASPIRIN
     Indication: PAPILLITIS
  16. PREDNISOLON [Concomitant]
     Active Substance: PREDNISOLONE
     Indication: UVEITIS
     Dosage: UNK
     Route: 065
     Dates: start: 20190818, end: 20190820
  17. SIMVASTATIN. [Concomitant]
     Active Substance: SIMVASTATIN
     Indication: HYPERCHOLESTEROLAEMIA
     Dosage: UNK
     Route: 065
     Dates: start: 20150101
  18. ASPIRIN. [Concomitant]
     Active Substance: ASPIRIN
     Indication: UVEITIS
     Dosage: UNK
     Route: 065
     Dates: start: 20190730
  19. ACEMIT [Concomitant]
     Dosage: 250 MG
     Route: 065
     Dates: start: 20190910, end: 20191001
  20. BROLUCIZUMAB. [Suspect]
     Active Substance: BROLUCIZUMAB
     Indication: DIABETIC RETINAL OEDEMA
  21. DEXASINE [Concomitant]
     Active Substance: DEXAMETHASONE SODIUM PHOSPHATE
     Indication: UVEITIS
  22. METFORMIN [Concomitant]
     Active Substance: METFORMIN HYDROCHLORIDE
     Indication: TYPE 2 DIABETES MELLITUS
     Dosage: UNK
     Route: 065
     Dates: start: 20141101
  23. PREDNISOLON [Concomitant]
     Active Substance: PREDNISOLONE
     Indication: PAPILLITIS
     Dosage: UNK
     Route: 065
     Dates: start: 20190821, end: 20190823
  24. LERCANIDIPINE [Concomitant]
     Active Substance: LERCANIDIPINE
     Indication: HYPERTENSION
     Dosage: UNK
     Route: 065
     Dates: start: 20190910, end: 20190910

REACTIONS (1)
  - Glaucoma [Not Recovered/Not Resolved]

NARRATIVE: CASE EVENT DATE: 20190910
